FAERS Safety Report 4917064-9 (Version None)
Quarter: 2006Q1

REPORT INFORMATION
  Report Type: 
  Country: None (occurrence: None)
  Receive Date: 20060221
  Receipt Date: 20060214
  Transmission Date: 20060701
  Serious: Yes (Life-Threatening, Hospitalization, Other)
  Sender: FDA-Public Use
  Company Number: US-GILEAD-2006-0009228

PATIENT
  Sex: Female
  Weight: 68.1 kg

DRUGS (14)
  1. VIREAD [Suspect]
     Indication: HIV INFECTION
     Route: 048
     Dates: start: 20050519, end: 20050801
  2. VIREAD [Suspect]
     Route: 048
     Dates: start: 20020619, end: 20040923
  3. DIDANOSINE [Suspect]
     Indication: HIV INFECTION
  4. SUSTIVA [Concomitant]
     Indication: HIV INFECTION
     Route: 048
     Dates: start: 20040619
  5. KALETRA [Concomitant]
     Indication: HIV INFECTION
     Route: 048
     Dates: start: 20031225
  6. ZYPREXA [Concomitant]
     Indication: DEPRESSION
     Route: 048
     Dates: start: 20030101
  7. EFFEXOR XR [Concomitant]
     Indication: DEPRESSION
     Route: 048
     Dates: start: 20020101
  8. REMERON [Concomitant]
     Indication: DEPRESSION
     Route: 048
     Dates: start: 20030101
  9. CLONAZEPAM [Concomitant]
     Indication: SLEEP DISORDER THERAPY
     Route: 048
     Dates: start: 20020101
  10. CLONAZEPAM [Concomitant]
     Indication: ANXIETY
  11. TRAZODONE [Concomitant]
     Indication: DEPRESSION
     Route: 048
     Dates: start: 19970101
  12. PROTONIX [Concomitant]
     Indication: NAUSEA
     Route: 048
     Dates: start: 20040101
  13. MS CONTIN [Concomitant]
     Indication: PAIN
     Route: 048
     Dates: start: 19840101
  14. PERCOCET [Concomitant]
     Indication: PAIN
     Route: 048
     Dates: start: 19840101

REACTIONS (4)
  - FANCONI SYNDROME ACQUIRED [None]
  - FEMORAL NECK FRACTURE [None]
  - HIP FRACTURE [None]
  - PANCREATITIS [None]
